FAERS Safety Report 5742484-2 (Version None)
Quarter: 2008Q2

REPORT INFORMATION
  Report Type: 
  Country: None (occurrence: None)
  Receive Date: 20080514
  Receipt Date: 20070413
  Transmission Date: 20081010
  Serious: Yes (Other)
  Sender: FDA-Public Use
  Company Number: US200704004255

PATIENT

DRUGS (1)
  1. KEFLEX [Suspect]
     Dates: start: 20060303, end: 20070404

REACTIONS (5)
  - BLISTER [None]
  - MUCOSAL INFLAMMATION [None]
  - MUCOUS MEMBRANE DISORDER [None]
  - SKIN LESION [None]
  - TOXIC EPIDERMAL NECROLYSIS [None]
